FAERS Safety Report 9682784 (Version 4)
Quarter: 2015Q3

REPORT INFORMATION
  Report Type: Spontaneous
  Country: US (occurrence: US)
  Receive Date: 20131112
  Receipt Date: 20150810
  Transmission Date: 20151125
  Serious: Yes (Other)
  Sender: FDA-Public Use
  Company Number: PHEH2013US023010

PATIENT
  Age: 38 Year
  Sex: Male

DRUGS (7)
  1. VALTURNA [Suspect]
     Active Substance: ALISKIREN HEMIFUMARATE\VALSARTAN
     Indication: PRODUCT USED FOR UNKNOWN INDICATION
     Dosage: 1 DF (150 MG ALIS AND 160 MG VALS), QD
     Route: 048
     Dates: start: 20100831, end: 201207
  2. JANUVIA [Concomitant]
     Active Substance: SITAGLIPTIN PHOSPHATE
     Indication: PRODUCT USED FOR UNKNOWN INDICATION
     Dosage: 100 MG, QD
     Route: 048
  3. LIPITOR [Concomitant]
     Active Substance: ATORVASTATIN CALCIUM
     Indication: PRODUCT USED FOR UNKNOWN INDICATION
     Dosage: 40 MG, QD
     Route: 048
  4. CARTIA XT [Concomitant]
     Active Substance: DILTIAZEM HYDROCHLORIDE
     Indication: PRODUCT USED FOR UNKNOWN INDICATION
     Dosage: 240 MG, QD
     Route: 048
  5. PLAVIX [Concomitant]
     Active Substance: CLOPIDOGREL BISULFATE
     Indication: PRODUCT USED FOR UNKNOWN INDICATION
     Dosage: 75 MG, QD
     Route: 048
  6. HYDROCHLOROTHIAZIDE. [Concomitant]
     Active Substance: HYDROCHLOROTHIAZIDE
     Indication: PRODUCT USED FOR UNKNOWN INDICATION
     Dosage: 25 MG, QD
     Route: 048
  7. HYDRALAZINE HCL [Concomitant]
     Active Substance: HYDRALAZINE HYDROCHLORIDE
     Indication: PRODUCT USED FOR UNKNOWN INDICATION
     Dosage: 50 MG, BID
     Route: 048

REACTIONS (49)
  - Cerebrovascular accident [Unknown]
  - Hypertensive crisis [Unknown]
  - Hyperlipidaemia [Unknown]
  - Erectile dysfunction [Unknown]
  - Injury [Unknown]
  - Anhedonia [Unknown]
  - Blood creatine phosphokinase increased [Unknown]
  - Hypertension [Unknown]
  - Chronic kidney disease [Unknown]
  - Atelectasis [Unknown]
  - Vomiting [Unknown]
  - Dyspepsia [Unknown]
  - Hypotension [Unknown]
  - Oedema peripheral [Unknown]
  - Diabetes mellitus [Unknown]
  - Obesity [Unknown]
  - Hemiparesis [Unknown]
  - Sinus tachycardia [Unknown]
  - Hypercholesterolaemia [Unknown]
  - Pneumonia [Unknown]
  - Proteinuria [Unknown]
  - Weight decreased [Unknown]
  - Pleural effusion [Unknown]
  - Diabetic retinopathy [Unknown]
  - Gait disturbance [Unknown]
  - Chest pain [Unknown]
  - Visual impairment [Unknown]
  - Weight increased [Unknown]
  - Coronary artery disease [Unknown]
  - Nausea [Unknown]
  - Cardiac failure congestive [Unknown]
  - Blood potassium increased [Unknown]
  - Hypokalaemia [Unknown]
  - Dyspnoea [Unknown]
  - Cardiovascular disorder [Unknown]
  - Diarrhoea [Unknown]
  - Myocardial infarction [Unknown]
  - Renal impairment [Unknown]
  - Asthenia [Unknown]
  - Cardiomegaly [Unknown]
  - Sleep apnoea syndrome [Unknown]
  - Hypothyroidism [Unknown]
  - Headache [Unknown]
  - Diabetic nephropathy [Unknown]
  - Pain [Unknown]
  - Anaemia [Unknown]
  - Lung infiltration [Unknown]
  - Cough [Unknown]
  - Dizziness [Unknown]

NARRATIVE: CASE EVENT DATE: 20101207
